FAERS Safety Report 14248607 (Version 1)
Quarter: 2017Q4

REPORT INFORMATION
  Report Type: Spontaneous
  Country: US (occurrence: US)
  Receive Date: 20171203
  Receipt Date: 20171203
  Transmission Date: 20180321
  Serious: Yes (Life-Threatening, Hospitalization, Disabling, Other)
  Sender: FDA-Public Use
  Company Number: None

PATIENT
  Sex: Female
  Weight: 56.25 kg

DRUGS (7)
  1. CALCIUM [Concomitant]
     Active Substance: CALCIUM
  2. SYNTHROID [Concomitant]
     Active Substance: LEVOTHYROXINE SODIUM
  3. HUMIRA [Suspect]
     Active Substance: ADALIMUMAB
     Indication: RHEUMATOID ARTHRITIS
     Dosage: ?          OTHER FREQUENCY:2X MONTHLY;?
     Route: 058
     Dates: start: 20140601, end: 20150718
  4. ARAVA [Concomitant]
     Active Substance: LEFLUNOMIDE
  5. LISINIPRIL [Concomitant]
     Active Substance: LISINOPRIL
  6. FOLIC ACID. [Concomitant]
     Active Substance: FOLIC ACID
  7. VIT. D [Concomitant]

REACTIONS (4)
  - Renal failure [None]
  - Hip arthroplasty [None]
  - General physical health deterioration [None]
  - Sepsis [None]

NARRATIVE: CASE EVENT DATE: 20150718
